FAERS Safety Report 21308857 (Version 12)
Quarter: 2023Q2

REPORT INFORMATION
  Report Type: Report from Study
  Country: CN (occurrence: CN)
  Receive Date: 20220908
  Receipt Date: 20230621
  Transmission Date: 20230722
  Serious: Yes (Hospitalization)
  Sender: FDA-Public Use
  Company Number: CN-JNJFOC-20220743110

PATIENT
  Age: 76 Year
  Sex: Female
  Weight: 56 kg

DRUGS (78)
  1. AMIVANTAMAB [Suspect]
     Active Substance: AMIVANTAMAB
     Indication: Non-small cell lung cancer metastatic
     Dosage: 1750 MG
     Route: 042
     Dates: start: 20220713, end: 20220825
  2. CARBOPLATIN [Suspect]
     Active Substance: CARBOPLATIN
     Indication: Non-small cell lung cancer metastatic
     Route: 042
     Dates: start: 20220713, end: 20220713
  3. CARBOPLATIN [Suspect]
     Active Substance: CARBOPLATIN
     Route: 042
     Dates: start: 20220713, end: 20220825
  4. PEMETREXED [Suspect]
     Active Substance: PEMETREXED
     Indication: Non-small cell lung cancer metastatic
     Route: 042
     Dates: start: 20220713, end: 20220713
  5. PEMETREXED [Suspect]
     Active Substance: PEMETREXED
     Route: 042
     Dates: start: 20220713, end: 20220825
  6. CINOBUFAGIN [Concomitant]
     Active Substance: CINOBUFAGIN
     Indication: Non-small cell lung cancer
     Route: 048
     Dates: start: 20210601, end: 20220712
  7. CALCIUM CARBONATE\CHOLECALCIFEROL [Concomitant]
     Active Substance: CALCIUM CARBONATE\CHOLECALCIFEROL
     Indication: Prophylaxis
     Route: 048
     Dates: start: 20210702
  8. CALCIUM CARBONATE\CHOLECALCIFEROL [Concomitant]
     Active Substance: CALCIUM CARBONATE\CHOLECALCIFEROL
     Route: 048
     Dates: start: 20221110
  9. CELECOXIB [Concomitant]
     Active Substance: CELECOXIB
     Indication: Pain
     Route: 048
     Dates: start: 20220315
  10. ESTAZOLAM [Concomitant]
     Active Substance: ESTAZOLAM
     Indication: Sleep disorder
     Route: 048
     Dates: start: 20220412, end: 20220714
  11. LACTULOSE [Concomitant]
     Active Substance: LACTULOSE
     Indication: Constipation
     Route: 048
     Dates: start: 20220613, end: 20220716
  12. OXYCODONE HYDROCHLORIDE [Concomitant]
     Active Substance: OXYCODONE HYDROCHLORIDE
     Indication: Pain
     Route: 048
     Dates: start: 20220614
  13. OXYCODONE HYDROCHLORIDE [Concomitant]
     Active Substance: OXYCODONE HYDROCHLORIDE
     Route: 048
     Dates: start: 20220701, end: 20220715
  14. OXYCODONE HYDROCHLORIDE [Concomitant]
     Active Substance: OXYCODONE HYDROCHLORIDE
     Route: 048
     Dates: start: 20220716, end: 20220717
  15. OXYCODONE HYDROCHLORIDE [Concomitant]
     Active Substance: OXYCODONE HYDROCHLORIDE
     Route: 048
     Dates: start: 20220718, end: 20220803
  16. OXYCODONE HYDROCHLORIDE [Concomitant]
     Active Substance: OXYCODONE HYDROCHLORIDE
     Route: 048
     Dates: start: 20220804, end: 20220804
  17. OXYCODONE HYDROCHLORIDE [Concomitant]
     Active Substance: OXYCODONE HYDROCHLORIDE
     Route: 048
     Dates: start: 20220805, end: 20220810
  18. CANNABIS SATIVA SEED\HERBALS [Concomitant]
     Active Substance: CANNABIS SATIVA SEED\HERBALS
     Indication: Constipation
     Route: 048
     Dates: start: 20220616, end: 20220712
  19. MINERALS\VITAMINS [Concomitant]
     Active Substance: MINERALS\VITAMINS
     Indication: Prophylaxis
     Route: 048
     Dates: start: 20220617
  20. COMBINED BIFIDOBACTERIUM, LACTOBACILLUS, ENTEROCOCCUS AND BACILLUS CER [Concomitant]
     Indication: Constipation
     Route: 048
     Dates: start: 20220627, end: 20220716
  21. EBASTINE [Concomitant]
     Active Substance: EBASTINE
     Indication: Rash
     Route: 048
     Dates: start: 20220628, end: 20220711
  22. GABAPENTIN [Concomitant]
     Active Substance: GABAPENTIN
     Indication: Pain
     Route: 048
     Dates: start: 20220629, end: 20220717
  23. AMMONIUM GLYCYRRHIZATE\CYSTEINE HYDROCHLORIDE\GLYCINE [Concomitant]
     Active Substance: AMMONIUM GLYCYRRHIZATE\CYSTEINE HYDROCHLORIDE\GLYCINE
     Indication: Rash
     Dosage: GLYCYRRHIZIN 25MG;?MONOAMMONIUM GLYCYRRHIZINATE 35MG;?GLYCINE 25MG;?DL-METHIONINE 25MG
     Route: 048
     Dates: start: 20220629, end: 20220711
  24. AMMONIUM GLYCYRRHIZATE\CYSTEINE HYDROCHLORIDE\GLYCINE [Concomitant]
     Active Substance: AMMONIUM GLYCYRRHIZATE\CYSTEINE HYDROCHLORIDE\GLYCINE
     Indication: Prophylaxis
  25. ERYTHROPOIETIN [Concomitant]
     Active Substance: ERYTHROPOIETIN
     Indication: Anaemia
     Route: 058
     Dates: start: 20220705, end: 20220705
  26. ERYTHROPOIETIN [Concomitant]
     Active Substance: ERYTHROPOIETIN
     Indication: Asthma
     Route: 058
     Dates: start: 20220719, end: 20220805
  27. YI QI WEI XUE [Concomitant]
     Indication: Anaemia
     Route: 048
     Dates: start: 20220705, end: 20220712
  28. YI QI WEI XUE [Concomitant]
     Route: 048
     Dates: start: 20220801, end: 20220805
  29. METHYLCOBALAMIN [Concomitant]
     Active Substance: METHYLCOBALAMIN
     Indication: Pain
     Route: 048
     Dates: start: 20220706, end: 20220717
  30. IRON SUCROSE [Concomitant]
     Active Substance: IRON SUCROSE
     Indication: Anaemia
     Route: 042
     Dates: start: 20220706, end: 20220712
  31. IRON SUCROSE [Concomitant]
     Active Substance: IRON SUCROSE
     Route: 042
     Dates: start: 20220722, end: 20220730
  32. GLYCERIN [Concomitant]
     Active Substance: GLYCERIN
     Indication: Constipation
     Route: 050
     Dates: start: 20220707, end: 20220707
  33. FAT SOLUBLE VITAMINS NOS [Concomitant]
     Indication: Prophylaxis
     Route: 042
     Dates: start: 20220707, end: 20220712
  34. FAT SOLUBLE VITAMINS NOS [Concomitant]
     Route: 042
     Dates: start: 20220714, end: 20220719
  35. SODIUM CHLORIDE [Concomitant]
     Active Substance: SODIUM CHLORIDE
     Indication: Electrolyte imbalance
     Route: 042
     Dates: start: 20220707, end: 20220712
  36. SODIUM CHLORIDE [Concomitant]
     Active Substance: SODIUM CHLORIDE
     Route: 042
     Dates: start: 20220714, end: 20220717
  37. SODIUM CHLORIDE [Concomitant]
     Active Substance: SODIUM CHLORIDE
     Route: 042
     Dates: start: 20220718, end: 20220719
  38. SODIUM CHLORIDE [Concomitant]
     Active Substance: SODIUM CHLORIDE
     Route: 042
     Dates: start: 20220720, end: 20220722
  39. SODIUM CHLORIDE [Concomitant]
     Active Substance: SODIUM CHLORIDE
     Route: 042
     Dates: start: 20220723, end: 20220729
  40. SODIUM CHLORIDE [Concomitant]
     Active Substance: SODIUM CHLORIDE
     Route: 042
     Dates: start: 20220731, end: 20220805
  41. IPRATROPIUM BROMIDE [Concomitant]
     Active Substance: IPRATROPIUM BROMIDE\IPRATROPIUM BROMIDE ANHYDROUS
     Indication: Asthma
     Route: 055
     Dates: start: 20220708, end: 20220712
  42. HEPARIN CALCIUM [Concomitant]
     Active Substance: HEPARIN CALCIUM
     Indication: Vascular access complication
     Route: 058
     Dates: start: 20220708, end: 20220722
  43. FAT EMULSION, AMINO ACIDS (17) AND GLUCOSE (11%) [Concomitant]
     Indication: Prophylaxis
     Route: 042
     Dates: start: 20220707, end: 20220712
  44. VITAMINS [Concomitant]
     Active Substance: VITAMINS
     Indication: Prophylaxis
     Route: 042
     Dates: start: 20220708, end: 20220712
  45. VITAMINS [Concomitant]
     Active Substance: VITAMINS
     Route: 042
     Dates: start: 20220714, end: 20220729
  46. BUDESONIDE [Concomitant]
     Active Substance: BUDESONIDE
     Indication: Asthma
     Route: 055
     Dates: start: 20220708, end: 20220712
  47. AMBROXOL HYDROCHLORIDE [Concomitant]
     Active Substance: AMBROXOL HYDROCHLORIDE
     Indication: Asthma
     Route: 042
     Dates: start: 20220708, end: 20220708
  48. FUROSEMIDE [Concomitant]
     Active Substance: FUROSEMIDE
     Indication: Asthma
     Route: 042
     Dates: start: 20220708, end: 20220708
  49. FUROSEMIDE [Concomitant]
     Active Substance: FUROSEMIDE
     Indication: Infusion related reaction
     Route: 042
     Dates: start: 20220713, end: 20220713
  50. PROMETHAZINE HYDROCHLORIDE [Concomitant]
     Active Substance: PROMETHAZINE HYDROCHLORIDE
     Indication: Infusion related reaction
     Route: 030
     Dates: start: 20220713, end: 20220713
  51. METHYLPREDNISOLONE SODIUM SUCCINATE [Concomitant]
     Active Substance: METHYLPREDNISOLONE SODIUM SUCCINATE
     Indication: Infusion related reaction
     Route: 042
     Dates: start: 20220713, end: 20220713
  52. TORSEMIDE [Concomitant]
     Active Substance: TORSEMIDE
     Indication: Prophylaxis
     Route: 042
     Dates: start: 20220714, end: 20220714
  53. TORSEMIDE [Concomitant]
     Active Substance: TORSEMIDE
     Indication: Prophylaxis
     Route: 042
     Dates: start: 20220715, end: 20220715
  54. TORSEMIDE [Concomitant]
     Active Substance: TORSEMIDE
     Route: 042
     Dates: start: 20220718, end: 20220718
  55. TROPISETRON [Concomitant]
     Active Substance: TROPISETRON
     Indication: Prophylaxis of nausea and vomiting
     Route: 042
     Dates: start: 20220628, end: 20220729
  56. TROPISETRON [Concomitant]
     Active Substance: TROPISETRON
     Route: 042
     Dates: start: 20220803, end: 20220805
  57. PHOSPHOLIPID [Concomitant]
     Active Substance: PHOSPHOLIPID
     Indication: Prophylaxis
     Route: 048
     Dates: start: 20220712, end: 20220717
  58. ALBUMIN HUMAN [Concomitant]
     Active Substance: ALBUMIN HUMAN
     Indication: Hypoproteinaemia
     Route: 042
     Dates: start: 20220712, end: 20220723
  59. ALBUMIN HUMAN [Concomitant]
     Active Substance: ALBUMIN HUMAN
     Indication: Hypoalbuminaemia
     Route: 042
     Dates: start: 20220724, end: 20220729
  60. AMMONIUM GLYCYRRHIZATE\CYSTEINE [Concomitant]
     Active Substance: AMMONIUM GLYCYRRHIZATE\CYSTEINE
     Indication: Prophylaxis
     Route: 042
     Dates: start: 20220713, end: 20220714
  61. AMMONIUM GLYCYRRHIZATE\CYSTEINE [Concomitant]
     Active Substance: AMMONIUM GLYCYRRHIZATE\CYSTEINE
     Route: 042
     Dates: start: 20220803, end: 20220805
  62. OLANZAPINE [Concomitant]
     Active Substance: OLANZAPINE
     Indication: Prophylaxis of nausea and vomiting
     Route: 048
     Dates: start: 20220713, end: 20220717
  63. FAT EMULSION, AMINO ACIDS (17) AND GLUCOSE (19%) [Concomitant]
     Indication: Nutritional supplementation
     Route: 042
     Dates: start: 20220714, end: 20220718
  64. MAGNESIUM ISOGLYCYRRHIZINATE [Concomitant]
     Active Substance: MAGNESIUM ISOGLYCYRRHIZINATE
     Indication: Prophylaxis
     Route: 042
     Dates: start: 20220714, end: 20220719
  65. GLUTATHIONE [Concomitant]
     Active Substance: GLUTATHIONE
     Indication: Prophylaxis
     Route: 042
     Dates: start: 20220714, end: 20220729
  66. PREGABALIN [Concomitant]
     Active Substance: PREGABALIN
     Indication: Pain
     Route: 048
     Dates: start: 20220716, end: 20220717
  67. MONTMORILLONITE [Concomitant]
     Active Substance: MONTMORILLONITE
     Indication: Diarrhoea
     Route: 050
     Dates: start: 20220717, end: 20220717
  68. ESOMEPRAZOLE SODIUM [Concomitant]
     Active Substance: ESOMEPRAZOLE SODIUM
     Indication: Prophylaxis
     Route: 042
     Dates: start: 20220717, end: 20220805
  69. FAT EMULSION, AMINO ACIDS (17) AND GLUCOSE (11%) [Concomitant]
     Indication: Nutritional supplementation
     Route: 042
     Dates: start: 20220719, end: 20220729
  70. METOCLOPRAMIDE [Concomitant]
     Active Substance: METOCLOPRAMIDE
     Indication: Prophylaxis of nausea and vomiting
     Route: 048
     Dates: start: 20220720, end: 20220723
  71. COMPOUND CHLORHEXIDINE GARGLE [Concomitant]
     Indication: Stomatitis
     Route: 050
     Dates: start: 20220725, end: 20220822
  72. COMPOUND CHLORHEXIDINE GARGLE [Concomitant]
     Indication: Mouth haemorrhage
  73. NOREPINEPHRINE BITARTRATE [Concomitant]
     Active Substance: NOREPINEPHRINE BITARTRATE
     Indication: Stomatitis
     Route: 050
     Dates: start: 20220725, end: 20220730
  74. NOREPINEPHRINE BITARTRATE [Concomitant]
     Active Substance: NOREPINEPHRINE BITARTRATE
     Indication: Mouth haemorrhage
  75. ENOXAPARIN SODIUM [Concomitant]
     Active Substance: ENOXAPARIN SODIUM
     Indication: Vascular access complication
     Route: 058
     Dates: start: 20220731, end: 20220805
  76. FISH OIL [Concomitant]
     Active Substance: FISH OIL
     Indication: Nutritional supplementation
     Route: 042
     Dates: start: 20220801, end: 20220805
  77. RIVAROXABAN [Concomitant]
     Active Substance: RIVAROXABAN
     Indication: Vascular access complication
     Route: 048
     Dates: start: 20220805
  78. LIDOCAINE HYDROCHLORIDE [Concomitant]
     Active Substance: LIDOCAINE HYDROCHLORIDE
     Indication: Stomatitis
     Dates: start: 20220913, end: 20220919

REACTIONS (8)
  - Hypokalaemia [Recovered/Resolved]
  - Leukopenia [Recovering/Resolving]
  - Neutrophil count decreased [Recovered/Resolved]
  - Anaemia [Recovering/Resolving]
  - Thrombocytopenia [Recovered/Resolved]
  - Leukopenia [Recovered/Resolved]
  - Neutropenia [Recovered/Resolved]
  - Urinary tract infection [Recovered/Resolved]

NARRATIVE: CASE EVENT DATE: 20220719
